FAERS Safety Report 17895633 (Version 1)
Quarter: 2020Q2

REPORT INFORMATION
  Report Type: Spontaneous
  Country: US (occurrence: US)
  Receive Date: 20200613
  Receipt Date: 20200613
  Transmission Date: 20200714
  Serious: No
  Sender: FDA-Public Use
  Company Number: None

PATIENT
  Age: 78 Year
  Sex: Male

DRUGS (14)
  1. DEFERASIROX 360MG [Suspect]
     Active Substance: DEFERASIROX
     Indication: IRON METABOLISM DISORDER
     Route: 048
  2. SYNTHROID [Concomitant]
     Active Substance: LEVOTHYROXINE SODIUM
  3. TAMSULOSIN HCL [Concomitant]
     Active Substance: TAMSULOSIN HYDROCHLORIDE
  4. DEFERASIROX 360MG [Suspect]
     Active Substance: DEFERASIROX
     Indication: ILEOSTOMY
     Route: 048
  5. CALCIUM/VITAMIN [Concomitant]
  6. MULTIVITAMIN MEN [Concomitant]
  7. FUROSEMIDE. [Concomitant]
     Active Substance: FUROSEMIDE
  8. LISINOPRIL. [Concomitant]
     Active Substance: LISINOPRIL
  9. DEFERASIROX 360MG [Suspect]
     Active Substance: DEFERASIROX
     Indication: HAEMOCHROMATOSIS
     Route: 048
  10. LONGS FISH OIL [Concomitant]
  11. PROCRIT [Concomitant]
     Active Substance: ERYTHROPOIETIN
  12. TRAMADOL HCL [Concomitant]
     Active Substance: TRAMADOL HYDROCHLORIDE
  13. ATORVASTATIN CALCIUM. [Concomitant]
     Active Substance: ATORVASTATIN CALCIUM
  14. LUTEIN [Concomitant]
     Active Substance: LUTEIN

REACTIONS (5)
  - Haemorrhage [None]
  - Fall [None]
  - Rib fracture [None]
  - Wound [None]
  - Liver injury [None]

NARRATIVE: CASE EVENT DATE: 20200612
